FAERS Safety Report 9490447 (Version 2)
Quarter: 2013Q3

REPORT INFORMATION
  Report Type: Spontaneous
  Country: CN (occurrence: CN)
  Receive Date: 20130830
  Receipt Date: 20130830
  Transmission Date: 20140515
  Serious: Yes (Death)
  Sender: FDA-Public Use
  Company Number: CN-ROCHE-1245388

PATIENT
  Age: 61 Year
  Sex: Male

DRUGS (6)
  1. AVASTIN [Suspect]
     Indication: COLORECTAL CANCER
     Dosage: DOSAGE: DAY 5
     Route: 065
     Dates: start: 20130613
  2. AVASTIN [Suspect]
     Indication: HEPATIC FUNCTION ABNORMAL
  3. XELODA [Suspect]
     Indication: COLORECTAL CANCER
     Dosage: DOSAGE: DAY 1-DAY 10
     Route: 065
     Dates: start: 20130609, end: 20130618
  4. XELODA [Suspect]
     Indication: HEPATIC FUNCTION ABNORMAL
  5. OXALIPLATIN [Concomitant]
     Indication: COLORECTAL CANCER
     Dosage: DOSAGE:DAY 1
     Route: 065
  6. OXALIPLATIN [Concomitant]
     Indication: HEPATIC FUNCTION ABNORMAL

REACTIONS (1)
  - Cerebral infarction [Fatal]
